FAERS Safety Report 8985457 (Version 1)
Quarter: 2012Q4

REPORT INFORMATION
  Report Type: 
  Country: CH (occurrence: CH)
  Receive Date: 20121226
  Receipt Date: 20121226
  Transmission Date: 20130627
  Serious: Yes (Hospitalization, Other)
  Sender: FDA-Public Use
  Company Number: CH-ASTRAZENECA-2012SE93742

PATIENT
  Age: 24 Year
  Sex: Female

DRUGS (3)
  1. SEROQUEL [Suspect]
     Indication: CONDUCT DISORDER
     Route: 048
  2. TRAMADOL [Suspect]
     Indication: CONDUCT DISORDER
     Route: 065
  3. CITALOPRAM [Suspect]
     Indication: CONDUCT DISORDER
     Route: 065

REACTIONS (3)
  - Exposure during pregnancy [Recovered/Resolved]
  - Premature baby [Recovered/Resolved]
  - Pre-eclampsia [Unknown]
